FAERS Safety Report 5916170-X (Version None)
Quarter: 2008Q4

REPORT INFORMATION
  Report Type: 
  Country: None (occurrence: None)
  Receive Date: 20081009
  Receipt Date: 20080924
  Transmission Date: 20090506
  Serious: Yes (Life-Threatening)
  Sender: FDA-Public Use
  Company Number: 2008S1000350

PATIENT
  Age: 84 Year
  Sex: Male

DRUGS (1)
  1. CUBICIN [Suspect]
     Indication: SOFT TISSUE INFECTION
     Dosage: 6 MG/KG;Q24H;IV
     Route: 042
     Dates: start: 20080912, end: 20080923

REACTIONS (2)
  - BRADYARRHYTHMIA [None]
  - VENTRICULAR TACHYCARDIA [None]
